FAERS Safety Report 14390936 (Version 1)
Quarter: 2018Q1

REPORT INFORMATION
  Report Type: Spontaneous
  Country: DE (occurrence: DE)
  Receive Date: 20180116
  Receipt Date: 20180116
  Transmission Date: 20180509
  Serious: Yes (Congenital Anomaly)
  Sender: FDA-Public Use
  Company Number: DE-AUROBINDO-AUR-APL-2018-001998

PATIENT
  Age: 1 Day
  Sex: Female
  Weight: 3.64 kg

DRUGS (12)
  1. SIMVASTATIN. [Concomitant]
     Active Substance: SIMVASTATIN
     Indication: HYPERCHOLESTEROLAEMIA
     Dosage: PROBABLY EITHER SIMVASTATIN OR ATOZET ()
     Route: 065
  2. ASPIRIN. [Concomitant]
     Active Substance: ASPIRIN
     Indication: HYPERTENSION
     Dosage: 100 [MG/D (VATER) ] ()
     Route: 065
     Dates: start: 20160819, end: 20170529
  3. FOLSAN [Concomitant]
     Active Substance: FOLIC ACID
     Indication: PROPHYLAXIS OF NEURAL TUBE DEFECT
     Dosage: 0.4 [MG/D (MUTTER) ]
     Route: 064
     Dates: start: 20160920, end: 20170529
  4. ESCITALOPRAM [Suspect]
     Active Substance: ESCITALOPRAM OXALATE
     Indication: DEPRESSION
     Dosage: 7.5 [MG/D (MUTTER) ]
     Route: 064
     Dates: start: 20160819, end: 20170529
  5. VALSARTAN. [Concomitant]
     Active Substance: VALSARTAN
     Indication: HYPERTENSION
     Dosage: 160 [MG/D (VATER) ] ()
     Route: 065
     Dates: start: 20160819, end: 20170529
  6. PARACETAMOL [Concomitant]
     Active Substance: ACETAMINOPHEN
     Indication: MIGRAINE
     Dosage: ()
     Route: 064
  7. DEKRISTOL [Concomitant]
     Active Substance: CHOLECALCIFEROL
     Indication: PRODUCT USED FOR UNKNOWN INDICATION
     Dosage: 20000 [IE/D (ALLE 2 WOCHEN) (VATER) ] ()
     Route: 065
     Dates: start: 20160819, end: 20170529
  8. AMLODIPINE [Concomitant]
     Active Substance: AMLODIPINE BESYLATE
     Indication: HYPERTENSION
     Dosage: 10 [MG/D (VATER) ] ()
     Route: 065
     Dates: start: 20160819, end: 20170529
  9. BICANORM [Concomitant]
     Active Substance: SODIUM BICARBONATE
     Indication: GLOMERULONEPHRITIS
     Dosage: ()
     Route: 065
     Dates: start: 20160819, end: 20170529
  10. EBRANTIL                           /00631801/ [Concomitant]
     Active Substance: URAPIDIL
     Indication: HYPERTENSION
     Dosage: ()
     Route: 065
     Dates: start: 20160819, end: 20170529
  11. RAMILICH [Concomitant]
     Active Substance: RAMIPRIL
     Indication: HYPERTENSION
     Dosage: 10 [MG/D (VATER) ] ()
     Route: 065
     Dates: start: 20160819, end: 20170529
  12. ATOZET [Concomitant]
     Active Substance: ATORVASTATIN CALCIUM\EZETIMIBE
     Indication: HYPERCHOLESTEROLAEMIA
     Dosage: 40 [MG/D ] / 10 [MG/D (VATER) ]/ PROBABLY EITHER ATOZET OR SIMVASTATIN ()
     Route: 065
     Dates: start: 20160819, end: 20170529

REACTIONS (3)
  - Ventricular septal defect [Recovered/Resolved with Sequelae]
  - Atrial septal defect [Recovered/Resolved]
  - Truncus arteriosus persistent [Recovered/Resolved with Sequelae]

NARRATIVE: CASE EVENT DATE: 20170529
